FAERS Safety Report 25407325 (Version 1)
Quarter: 2025Q2

REPORT INFORMATION
  Report Type: Spontaneous
  Country: HK (occurrence: HK)
  Receive Date: 20250606
  Receipt Date: 20250606
  Transmission Date: 20250716
  Serious: Yes (Death)
  Sender: PFIZER
  Company Number: HK-PFIZER INC-PV202500068021

PATIENT

DRUGS (1)
  1. LORLATINIB [Suspect]
     Active Substance: LORLATINIB

REACTIONS (3)
  - Sleep apnoea syndrome [Fatal]
  - Irritability [Unknown]
  - Condition aggravated [Unknown]
